FAERS Safety Report 8214102-5 (Version None)
Quarter: 2012Q1

REPORT INFORMATION
  Report Type: 
  Country: None (occurrence: None)
  Receive Date: 20120316
  Receipt Date: 20120313
  Transmission Date: 20120608
  Serious: No
  Sender: FDA-Public Use
  Company Number: US-PFIZER INC-2012066392

PATIENT
  Sex: Female
  Weight: 68.027 kg

DRUGS (3)
  1. ATENOLOL [Concomitant]
     Dosage: 25 MG, DAILY
  2. ZOCOR [Concomitant]
     Dosage: 25 MG, DAILY
  3. TIKOSYN [Suspect]
     Indication: ATRIAL FIBRILLATION
     Dosage: 500 MG, 2X/DAY

REACTIONS (8)
  - FEELING HOT [None]
  - DRUG INEFFECTIVE [None]
  - INCORRECT DOSE ADMINISTERED [None]
  - COLD SWEAT [None]
  - CHEST DISCOMFORT [None]
  - HYPERHIDROSIS [None]
  - FEELING ABNORMAL [None]
  - DYSGEUSIA [None]
